FAERS Safety Report 4839671-4 (Version None)
Quarter: 2005Q4

REPORT INFORMATION
  Report Type: 
  Country: None (occurrence: None)
  Receive Date: 20051129
  Receipt Date: 20050524
  Transmission Date: 20060501
  Serious: No
  Sender: FDA-Public Use
  Company Number: US-GLAXOSMITHKLINE-A0559904A

PATIENT
  Age: 46 Year
  Sex: Female

DRUGS (13)
  1. WELLBUTRIN SR [Suspect]
     Indication: DEPRESSION
     Dosage: 150MG TWICE PER DAY
     Route: 048
     Dates: start: 20050516
  2. FOLIC ACID [Concomitant]
  3. PLAVIX [Concomitant]
  4. COREG [Concomitant]
  5. FUROSEMIDE [Concomitant]
  6. SPIRONOLACTONE [Concomitant]
  7. ZYRTEC [Concomitant]
  8. LEVOTHROID [Concomitant]
  9. DIAZEPAM [Concomitant]
  10. ACTONEL [Concomitant]
  11. WARFARIN SODIUM [Concomitant]
  12. CALCIUM SUPPLEMENT [Concomitant]
  13. COZAAR [Concomitant]

REACTIONS (2)
  - AGITATION [None]
  - DEPRESSION [None]
